FAERS Safety Report 19000331 (Version 1)
Quarter: 2021Q1

REPORT INFORMATION
  Report Type: Spontaneous
  Country: US (occurrence: US)
  Receive Date: 20210311
  Receipt Date: 20210311
  Transmission Date: 20210420
  Serious: Yes (Hospitalization)
  Sender: FDA-Public Use
  Company Number: None

PATIENT
  Age: 33 Year
  Sex: Female
  Weight: 60 kg

DRUGS (1)
  1. CLONAZEPAM (CLONAZEPAM 0.5MG TAB) [Suspect]
     Active Substance: CLONAZEPAM
     Indication: ANXIETY
     Route: 048
     Dates: start: 20180412

REACTIONS (2)
  - Intentional overdose [None]
  - Intentional self-injury [None]

NARRATIVE: CASE EVENT DATE: 20200901
